FAERS Safety Report 6945561-3 (Version None)
Quarter: 2010Q3

REPORT INFORMATION
  Report Type: 
  Country: None (occurrence: None)
  Receive Date: 20100827
  Receipt Date: 20100819
  Transmission Date: 20110219
  Serious: Yes (Death, Other)
  Sender: FDA-Public Use
  Company Number: PH-ABBOTT-10P-128-0658924-00

PATIENT
  Age: 8 Year
  Weight: 22 kg

DRUGS (2)
  1. VALPROIC ACID SYRUP [Suspect]
     Indication: CONVULSION
     Route: 048
  2. DEPACON [Suspect]
     Indication: CONVULSION
     Dosage: 220MG FOR 1 HOUR INFUSION, ONCE
     Route: 042

REACTIONS (4)
  - DRUG DOSE OMISSION [None]
  - HEPATIC ENZYME INCREASED [None]
  - HEPATOTOXICITY [None]
  - STATUS EPILEPTICUS [None]
